FAERS Safety Report 9236102 (Version 1)
Quarter: 2013Q2

REPORT INFORMATION
  Report Type: Spontaneous
  Country: US (occurrence: None)
  Receive Date: 20130416
  Receipt Date: 20130416
  Transmission Date: 20140414
  Serious: Yes (Hospitalization)
  Sender: FDA-Public Use
  Company Number: None

PATIENT
  Age: 88 Year
  Sex: Male
  Weight: 73.3 kg

DRUGS (13)
  1. PRADAXA [Suspect]
     Indication: ATRIAL FIBRILLATION
     Dosage: 150MG BID PO?PRIOR TO ADMIT 8/29/12
     Route: 048
  2. ASPIRIN [Suspect]
     Indication: PROPHYLAXIS
     Dosage: 81 MG DAILY PO ?PRIOR TO ADMIT 8/29/12
     Route: 048
  3. ASPIRIN [Suspect]
     Indication: COAGULOPATHY
     Dosage: 81 MG DAILY PO ?PRIOR TO ADMIT 8/29/12
     Route: 048
  4. ALLOPURINOL [Concomitant]
  5. DIGOXIN [Concomitant]
  6. GLUCOSAMINE [Concomitant]
  7. LISINOPRIL [Concomitant]
  8. METOPROLOL SR [Concomitant]
  9. MVI [Concomitant]
  10. PRAVASTATIN [Concomitant]
  11. TAMSULOSIN [Concomitant]
  12. TYLENOL XS [Concomitant]
  13. VITAMIN D-3 [Concomitant]

REACTIONS (1)
  - Lower gastrointestinal haemorrhage [None]
